FAERS Safety Report 7082654-7 (Version None)
Quarter: 2010Q4

REPORT INFORMATION
  Report Type: 
  Country: None (occurrence: None)
  Receive Date: 20101104
  Receipt Date: 20101026
  Transmission Date: 20110411
  Serious: Yes (Hospitalization)
  Sender: FDA-Public Use
  Company Number: NO-ASTRAZENECA-2010SE50994

PATIENT
  Age: 92 Year
  Sex: Female

DRUGS (10)
  1. IMDUR [Suspect]
     Route: 048
  2. METOPROLOL SUCCINATE [Suspect]
     Route: 048
  3. CYMBALTA [Suspect]
     Route: 048
  4. LEVOTHYROXINE SODIUM [Concomitant]
     Route: 048
  5. ZOPICLONE [Concomitant]
     Route: 048
  6. OVESTERIN [Concomitant]
     Route: 048
  7. FOLIC ACID [Concomitant]
     Route: 048
  8. COZAAR [Concomitant]
     Route: 048
  9. ALBYL-E [Concomitant]
     Route: 048
  10. GLYCERYL TRINITRATE [Concomitant]
     Dosage: AS NECESSARY
     Route: 060

REACTIONS (1)
  - ORTHOSTATIC HYPOTENSION [None]
